FAERS Safety Report 9723708 (Version 3)
Quarter: 2014Q2

REPORT INFORMATION
  Report Type: Report from Study
  Country: PH (occurrence: PH)
  Receive Date: 20131202
  Receipt Date: 20140602
  Transmission Date: 20141212
  Serious: Yes (Other)
  Sender: FDA-Public Use
  Company Number: 2013SP000447

PATIENT
  Age: 3 Year
  Sex: Female
  Weight: 8 kg

DRUGS (12)
  1. ESLICARBAZEPINE ACETATE [Suspect]
     Indication: EPILEPSY
     Route: 048
     Dates: start: 20120927
  2. ESLICARBAZEPINE ACETATE [Suspect]
     Indication: EPILEPSY
     Route: 048
     Dates: start: 20120830, end: 20120926
  3. ESLICARBAZEPINE ACETATE [Suspect]
     Indication: EPILEPSY
     Route: 048
     Dates: start: 20120802, end: 20120829
  4. PHENOBARBITAL [Concomitant]
     Indication: CONVULSION
     Route: 048
     Dates: start: 200812
  5. LEVETIRACETAM [Concomitant]
     Indication: CONVULSION
     Route: 048
     Dates: start: 20110615
  6. CEFUROXIME [Concomitant]
     Indication: PNEUMONIA
     Route: 042
     Dates: start: 20121206, end: 20121214
  7. PARACETAMOL [Concomitant]
     Indication: PNEUMONIA
     Route: 048
     Dates: start: 20121205, end: 20121212
  8. PARACETAMOL [Concomitant]
     Indication: UPPER RESPIRATORY TRACT INFECTION
     Route: 048
     Dates: start: 20121205, end: 20121212
  9. PARACETAMOL [Concomitant]
     Indication: PNEUMONIA
     Route: 048
     Dates: start: 20130621, end: 20130623
  10. PARACETAMOL [Concomitant]
     Indication: UPPER RESPIRATORY TRACT INFECTION
     Route: 048
     Dates: start: 20130621, end: 20130623
  11. DOMPERIDONE [Concomitant]
     Indication: GASTROOESOPHAGEAL REFLUX DISEASE
     Route: 048
     Dates: start: 20121214, end: 20130102
  12. SALBUTAMOL [Concomitant]
     Indication: UPPER RESPIRATORY TRACT INFECTION
     Route: 048
     Dates: start: 20130626, end: 20130703

REACTIONS (2)
  - Gamma-glutamyltransferase increased [Not Recovered/Not Resolved]
  - Aspartate aminotransferase increased [Recovered/Resolved]
